FAERS Safety Report 5793838-X (Version None)
Quarter: 2008Q2

REPORT INFORMATION
  Report Type: 
  Country: None (occurrence: None)
  Receive Date: 20080627
  Receipt Date: 20080627
  Transmission Date: 20081010
  Serious: Yes (Death)
  Sender: FDA-Public Use
  Company Number: US-BOEHRINGER INGELHEIM GMBH, GERMANY-2008-BP-09973RO

PATIENT
  Age: 44 Year
  Sex: Female

DRUGS (3)
  1. ZOLPIDEM [Suspect]
  2. MIRTAZAPINE [Suspect]
  3. TEMAZEPAM [Suspect]

REACTIONS (1)
  - DRUG TOXICITY [None]
